FAERS Safety Report 9222926 (Version 1)
Quarter: 2013Q2

REPORT INFORMATION
  Report Type: Other
  Country: IT (occurrence: IT)
  Receive Date: 20130410
  Receipt Date: 20130410
  Transmission Date: 20140414
  Serious: Yes (Other)
  Sender: FDA-Public Use
  Company Number: IT-NOVEN-13IT006536

PATIENT
  Sex: Female

DRUGS (2)
  1. PAROXETINE [Suspect]
     Indication: DEPRESSION
     Dosage: 10 MG, QD
     Route: 048
     Dates: start: 20130316, end: 20130320
  2. EPARGRISEOVIT [Concomitant]

REACTIONS (3)
  - Circulatory collapse [Recovering/Resolving]
  - Peripheral vascular disorder [Recovering/Resolving]
  - Bradycardia [Recovering/Resolving]
